FAERS Safety Report 21941912 (Version 2)
Quarter: 2023Q2

REPORT INFORMATION
  Report Type: Spontaneous
  Country: IT (occurrence: IT)
  Receive Date: 20230202
  Receipt Date: 20230630
  Transmission Date: 20230722
  Serious: Yes (Hospitalization)
  Sender: FDA-Public Use
  Company Number: IT-CELLTRION INC.-2023IT001860

PATIENT

DRUGS (3)
  1. RITUXIMAB [Suspect]
     Active Substance: RITUXIMAB
     Indication: Autoimmune haemolytic anaemia
     Dosage: 4 INFUSIONS
     Route: 042
     Dates: start: 201811
  2. RITUXIMAB [Suspect]
     Active Substance: RITUXIMAB
     Dosage: 4 INFUSIONS
     Route: 042
     Dates: start: 201902
  3. CYCLOSPORINE [Concomitant]
     Active Substance: CYCLOSPORINE

REACTIONS (2)
  - Anaemia [Recovered/Resolved]
  - Intentional product use issue [Unknown]
